FAERS Safety Report 9472603 (Version 1)
Quarter: 2013Q3

REPORT INFORMATION
  Report Type: Spontaneous
  Country: US (occurrence: US)
  Receive Date: 20130823
  Receipt Date: 20130823
  Transmission Date: 20140515
  Serious: No
  Sender: FDA-Public Use
  Company Number: US-BAYER-2013-101853

PATIENT
  Age: 81 Year
  Sex: Male
  Weight: 82 kg

DRUGS (4)
  1. ALEVE TABLET [Suspect]
     Indication: BACK PAIN
     Dosage: 1 DF, QD
     Route: 048
     Dates: start: 201307
  2. FLOMAX [TAMSULOSIN HYDROCHLORIDE] [Concomitant]
  3. VITAMIN B [Concomitant]
  4. ASPIRIN [Concomitant]

REACTIONS (1)
  - Incorrect drug administration duration [None]
